FAERS Safety Report 24966523 (Version 1)
Quarter: 2025Q1

REPORT INFORMATION
  Report Type: Spontaneous
  Country: SE (occurrence: SE)
  Receive Date: 20250213
  Receipt Date: 20250213
  Transmission Date: 20250408
  Serious: Yes (Hospitalization)
  Sender: BAYER HEALTHCARE PHARMACEUTICALS INC.
  Company Number: None

PATIENT
  Age: 86 Year
  Sex: Male

DRUGS (2)
  1. NUBEQA [Interacting]
     Active Substance: DAROLUTAMIDE
     Route: 048
     Dates: start: 20240126, end: 20241113
  2. MIRABEGRON [Interacting]
     Active Substance: MIRABEGRON
     Dosage: 25 MG, QD 1X1
     Route: 048
     Dates: start: 20240905, end: 20240906

REACTIONS (1)
  - Atrial fibrillation [Recovering/Resolving]

NARRATIVE: CASE EVENT DATE: 20240905
